FAERS Safety Report 8042572 (Version 4)
Quarter: 2015Q2

REPORT INFORMATION
  Report Type: Spontaneous
  Country: US (occurrence: US)
  Receive Date: 20110718
  Receipt Date: 20150415
  Transmission Date: 20150821
  Serious: Yes (Congenital Anomaly, Other)
  Sender: FDA-Public Use
  Company Number: US-PFIZER INC-2009295834

PATIENT
  Sex: Female
  Weight: 3.7 kg

DRUGS (19)
  1. EFFEXOR XR [Suspect]
     Active Substance: VENLAFAXINE HYDROCHLORIDE
     Indication: ANXIETY
     Dosage: 75 MG, 1X/DAY
     Route: 064
     Dates: start: 200706, end: 2009
  2. PATANOL [Concomitant]
     Active Substance: OLOPATADINE HYDROCHLORIDE
     Indication: OCULAR HYPERAEMIA
     Dosage: 0.1 %, DAILY
     Route: 064
     Dates: start: 200705
  3. PRENEXA [Concomitant]
     Active Substance: .ALPHA.-TOCOPHEROL\ASCORBIC ACID\CHOLECALCIFEROL\DOCONEXENT\DOCUSATE SODIUM\FERROUS FUMARATE\FOLIC ACID\PYRIDOXINE HYDROCHLORIDE\TRIBASIC CALCIUM PHOSPHATE
     Indication: VITAMIN SUPPLEMENTATION
     Dosage: 1 DF, 1X/DAY
     Route: 064
     Dates: start: 200907, end: 200908
  4. PRENATAL VITAMINS [Concomitant]
     Active Substance: VITAMINS
     Dosage: UNK
     Route: 064
  5. CEPHALEXIN. [Concomitant]
     Active Substance: CEPHALEXIN
     Indication: ARTHROPOD BITE
     Dosage: 500 MG, DAILY
     Route: 064
     Dates: start: 200705
  6. EFFEXOR XR [Suspect]
     Active Substance: VENLAFAXINE HYDROCHLORIDE
     Indication: DEPRESSION
     Dosage: 37.5 MG, 1X/DAY
     Route: 064
     Dates: start: 200705
  7. TAMIFLU [Concomitant]
     Active Substance: OSELTAMIVIR PHOSPHATE
     Dosage: 75 MG, 1X/DAY
     Route: 064
     Dates: start: 200802
  8. AMOXICILLIN. [Concomitant]
     Active Substance: AMOXICILLIN
     Dosage: 500 MG, DAILY
     Route: 064
     Dates: start: 200807, end: 200905
  9. VENLAFAXINE HCL [Suspect]
     Active Substance: VENLAFAXINE HYDROCHLORIDE
     Dosage: UNK
     Route: 064
     Dates: start: 200504, end: 20100526
  10. KETOROLAC [Concomitant]
     Active Substance: KETOROLAC\KETOROLAC TROMETHAMINE
     Dosage: 10 MG, DAILY
     Route: 064
     Dates: start: 200708
  11. EFFEXOR [Suspect]
     Active Substance: VENLAFAXINE HYDROCHLORIDE
     Dosage: UNK
     Route: 064
     Dates: start: 200504, end: 20100526
  12. CIPRO [Concomitant]
     Active Substance: CIPROFLOXACIN HYDROCHLORIDE
     Dosage: UNK
     Route: 064
  13. TYLENOL [Concomitant]
     Active Substance: ACETAMINOPHEN
     Dosage: UNK
     Route: 064
  14. PRENATE DHA [Concomitant]
     Active Substance: .ALPHA.-TOCOPHEROL, DL-\ASCORBIC ACID\CALCIUM CARBONATE\CHOLECALCIFEROL\CYANOCOBALAMIN\DOCONEXENT\FERROUS FUMARATE\FOLIC ACID\MAGNESIUM OXIDE\PYRIDOXINE HYDROCHLORIDE
     Indication: VITAMIN SUPPLEMENTATION
     Dosage: 1 DF, 1X/DAY
     Route: 064
     Dates: start: 200902, end: 200908
  15. LEXAPRO [Concomitant]
     Active Substance: ESCITALOPRAM OXALATE
     Indication: DEPRESSION
     Dosage: 10 MG, DAILY
     Route: 064
     Dates: start: 200503, end: 200703
  16. LEXAPRO [Concomitant]
     Active Substance: ESCITALOPRAM OXALATE
     Indication: ANXIETY
     Dosage: 10 MG, DAILY
     Route: 064
     Dates: start: 200902
  17. HYDROCODONE [Concomitant]
     Active Substance: HYDROCODONE
     Dosage: 7.5 MG, DAILY
     Route: 064
     Dates: start: 200611, end: 200812
  18. CIPROFLOXACIN. [Concomitant]
     Active Substance: CIPROFLOXACIN
     Indication: URINARY TRACT INFECTION
     Dosage: 500 MG, DAILY
     Route: 064
     Dates: start: 200901
  19. AZITHROMYCIN [Concomitant]
     Active Substance: AZITHROMYCIN ANHYDROUS
     Dosage: UNK, AS NEEDED
     Route: 064
     Dates: start: 200611

REACTIONS (6)
  - Patent ductus arteriosus [Unknown]
  - Large for dates baby [Unknown]
  - Atrial septal defect [Unknown]
  - Congenital anomaly [Unknown]
  - Maternal exposure timing unspecified [Unknown]
  - Ventricular septal defect [Unknown]

NARRATIVE: CASE EVENT DATE: 20090930
